FAERS Safety Report 11327471 (Version 4)
Quarter: 2016Q4

REPORT INFORMATION
  Report Type: Spontaneous
  Country: US (occurrence: US)
  Receive Date: 20150731
  Receipt Date: 20161216
  Transmission Date: 20170206
  Serious: No
  Sender: FDA-Public Use
  Company Number: US-PFIZER INC-2015254755

PATIENT
  Age: 50 Year
  Sex: Female
  Weight: 91 kg

DRUGS (24)
  1. LYRICA [Suspect]
     Active Substance: PREGABALIN
     Indication: MUSCULOSKELETAL DISCOMFORT
  2. VALIUM [Suspect]
     Active Substance: DIAZEPAM
     Indication: MUSCLE SPASMS
     Dosage: 5 MG, 3X/DAY
     Route: 048
     Dates: start: 20150608
  3. IMITREX [Concomitant]
     Active Substance: SUMATRIPTAN SUCCINATE
     Indication: HEADACHE
     Dosage: 50 MG, AS NEEDED (TAKE ONE TABLET AT BEGINNING OF HEADACHE, REPEAT 1 TABLET AT TWO HOURS)
     Dates: start: 20150611
  4. FLEXERIL [Concomitant]
     Active Substance: CYCLOBENZAPRINE HYDROCHLORIDE
     Dosage: 10 MG, 3X/DAY
     Route: 048
     Dates: start: 20150409
  5. NEURONTIN [Concomitant]
     Active Substance: GABAPENTIN
     Dosage: 600 MG, 2X/DAY
     Dates: start: 20141218
  6. CLARITIN [Concomitant]
     Active Substance: LORATADINE
     Dosage: 10 MG, DAILY
     Route: 048
  7. LYRICA [Suspect]
     Active Substance: PREGABALIN
     Indication: JOINT INJURY
     Dosage: 75 MG, 1X/DAY
     Route: 048
     Dates: start: 20150716
  8. RELPAX [Suspect]
     Active Substance: ELETRIPTAN HYDROBROMIDE
     Dosage: 40 MG, AS NEEDED (1 TABLET ONCE FOR UP TO 1 DOSE)
     Route: 048
  9. DILAUDID [Concomitant]
     Active Substance: HYDROMORPHONE HYDROCHLORIDE
     Indication: PAIN
     Dosage: 2 MG, AS NEEDED (2 TIMES DAILY)
     Route: 048
     Dates: start: 20161117
  10. VITAMIN D3 [Concomitant]
     Active Substance: CHOLECALCIFEROL
     Dosage: 5000 IU, ALTERNATE DAY
     Route: 048
  11. MULTIPLE VITAMIN [Suspect]
     Active Substance: VITAMINS
  12. DESOXIMETASONE. [Concomitant]
     Active Substance: DESOXIMETASONE
     Dosage: UNK UNK, DAILY (TAKE 1 APPLICATION TO THE SKIN)
     Route: 061
  13. FLUOCINOLONE ACETONIDE. [Concomitant]
     Active Substance: FLUOCINOLONE ACETONIDE
     Dosage: 1 DF, 1X/DAY (APPLY 1 APPLICATION TO THE SKIN EVERY EVENING)
  14. XYLOCAINE [Concomitant]
     Active Substance: LIDOCAINE HYDROCHLORIDE
     Dosage: UNK
     Dates: start: 20141218
  15. LYRICA [Suspect]
     Active Substance: PREGABALIN
     Indication: NECK INJURY
     Dosage: 75 MG, 2X/DAY
     Route: 048
     Dates: start: 20150617
  16. PERCOCET [Concomitant]
     Active Substance: ACETAMINOPHEN\OXYCODONE HYDROCHLORIDE
     Dosage: UNK UNK, AS NEEDED [OXYCODONE 5 MG/ ACETAMINOPHEN 325 MG; TAKE 1 TABLET EVERY 4 HOURS]
     Route: 048
     Dates: start: 20150409
  17. CALCIUM CARBONATE. [Concomitant]
     Active Substance: CALCIUM CARBONATE
     Dosage: 600 MG, DAILY
     Route: 048
  18. KENALOG [Concomitant]
     Active Substance: TRIAMCINOLONE ACETONIDE
     Dosage: 2 ML, SINGLE (2 ML=80 MG OF 40 MG/ML, FREQUENCY: ONCE)
     Route: 014
     Dates: start: 20161110
  19. HYDROCORTISONE. [Concomitant]
     Active Substance: HYDROCORTISONE
     Dosage: 1 DF, DAILY
     Route: 061
  20. LYRICA [Suspect]
     Active Substance: PREGABALIN
     Indication: BACK INJURY
  21. VALIUM [Suspect]
     Active Substance: DIAZEPAM
     Dosage: 2.5 MG, 3X/DAY
     Route: 048
     Dates: start: 20150709
  22. PAMELOR [Concomitant]
     Active Substance: NORTRIPTYLINE HYDROCHLORIDE
     Dosage: 25 MG, 1X/DAY
     Route: 048
     Dates: start: 20161117
  23. ZYRTEC [Concomitant]
     Active Substance: CETIRIZINE HYDROCHLORIDE
     Dosage: 10 MG, UNK
     Route: 048
  24. SALICYLIC ACID. [Concomitant]
     Active Substance: SALICYLIC ACID
     Dosage: UNK (APPLY 1 APPLICATION TO THE SKIN EVERY 3 DAYS)
     Route: 061

REACTIONS (13)
  - Wound haemorrhage [Recovering/Resolving]
  - Wound complication [Not Recovered/Not Resolved]
  - Dizziness [Recovering/Resolving]
  - Somnolence [Recovering/Resolving]
  - Fatigue [Not Recovered/Not Resolved]
  - Contusion [Recovering/Resolving]
  - Laceration [Recovering/Resolving]
  - Clumsiness [Recovered/Resolved]
  - Product use issue [Not Recovered/Not Resolved]
  - Fall [Recovering/Resolving]
  - Disturbance in attention [Recovering/Resolving]
  - Balance disorder [Recovering/Resolving]
  - Memory impairment [Not Recovered/Not Resolved]

NARRATIVE: CASE EVENT DATE: 201506
